FAERS Safety Report 4540455-5 (Version None)
Quarter: 2004Q4

REPORT INFORMATION
  Report Type: 
  Country: None (occurrence: None)
  Receive Date: 20041229
  Receipt Date: 20041220
  Transmission Date: 20050328
  Serious: Yes (Other)
  Sender: FDA-Public Use
  Company Number: US-JNJFOC-20041007575

PATIENT
  Sex: Male
  Weight: 67.13 kg

DRUGS (2)
  1. REMICADE [Suspect]
     Indication: CROHN'S DISEASE
     Dosage: HAS BEEN ON MAINTENANCE DOSE FOR 3 YEARS
     Route: 042
  2. PENTASA [Concomitant]
     Indication: CROHN'S DISEASE
     Dosage: TAKING FOR SEVERAL YEARS

REACTIONS (2)
  - HISTOPLASMOSIS [None]
  - MOUTH ULCERATION [None]
